FAERS Safety Report 18801238 (Version 1)
Quarter: 2021Q1

REPORT INFORMATION
  Report Type: Spontaneous
  Country: US (occurrence: US)
  Receive Date: 20210128
  Receipt Date: 20210128
  Transmission Date: 20210419
  Serious: Yes (Other)
  Sender: FDA-Public Use
  Company Number: US-GLENMARK PHARMACEUTICALS-2020GMK050733

PATIENT

DRUGS (5)
  1. COLESEVELAM HYDROCHLORIDE FOR ORAL SUSUPENSION [Suspect]
     Active Substance: COLESEVELAM HYDROCHLORIDE
     Dosage: 3.75 GRAM, OD
     Route: 048
     Dates: start: 2020
  2. COLESEVELAM HYDROCHLORIDE FOR ORAL SUSUPENSION [Suspect]
     Active Substance: COLESEVELAM HYDROCHLORIDE
     Dosage: 7.5 GRAM (IN TOTAL) (PATIENT TOOK THE DOUBLE DOSE AS INSTRUCTED BY THE PHYSICIAN TO LOWER THE CHOLES
     Route: 048
     Dates: start: 20201119, end: 20201122
  3. CALCIUM [Concomitant]
     Active Substance: CALCIUM
     Indication: BONE DISORDER
     Dosage: UNK
     Route: 065
  4. COLESEVELAM HYDROCHLORIDE FOR ORAL SUSUPENSION [Suspect]
     Active Substance: COLESEVELAM HYDROCHLORIDE
     Indication: BLOOD CHOLESTEROL INCREASED
     Dosage: 3.75 GRAM, OD
     Route: 048
  5. VITAMINS NOS [Suspect]
     Active Substance: VITAMINS
     Indication: PRODUCT USED FOR UNKNOWN INDICATION
     Dosage: UNK
     Route: 065

REACTIONS (10)
  - Product physical consistency issue [Unknown]
  - Product taste abnormal [Unknown]
  - Product substitution issue [Unknown]
  - Pancreatitis [Not Recovered/Not Resolved]
  - Enzyme level increased [Recovered/Resolved]
  - Constipation [Recovered/Resolved]
  - Product solubility abnormal [Unknown]
  - Blood glucose increased [Not Recovered/Not Resolved]
  - Stress [Not Recovered/Not Resolved]
  - Blood triglycerides increased [Not Recovered/Not Resolved]
